FAERS Safety Report 8043679-8 (Version None)
Quarter: 2012Q1

REPORT INFORMATION
  Report Type: 
  Country: None (occurrence: None)
  Receive Date: 20120112
  Receipt Date: 20120109
  Transmission Date: 20120608
  Serious: Yes (Disabling, Other)
  Sender: FDA-Public Use
  Company Number: CA-MERCK-1201USA01004

PATIENT
  Age: 28 Year
  Sex: Male
  Weight: 70 kg

DRUGS (1)
  1. PROSCAR [Suspect]
     Route: 048

REACTIONS (12)
  - DEPRESSION [None]
  - LIBIDO DECREASED [None]
  - ABDOMINAL DISCOMFORT [None]
  - ABDOMINAL PAIN [None]
  - PALPITATIONS [None]
  - ANXIETY [None]
  - GENITAL HYPOAESTHESIA [None]
  - ERECTILE DYSFUNCTION [None]
  - QUALITY OF LIFE DECREASED [None]
  - BLADDER DISCOMFORT [None]
  - DRY SKIN [None]
  - SUICIDAL IDEATION [None]
